FAERS Safety Report 19180305 (Version 1)
Quarter: 2021Q2

REPORT INFORMATION
  Report Type: Spontaneous
  Country: US (occurrence: US)
  Receive Date: 20210426
  Receipt Date: 20210426
  Transmission Date: 20210717
  Serious: No
  Sender: FDA-Public Use
  Company Number: US-PFIZER INC-2021348762

PATIENT
  Age: 47 Year
  Sex: Male
  Weight: 151.93 kg

DRUGS (2)
  1. INLYTA [Suspect]
     Active Substance: AXITINIB
     Indication: RENAL CANCER
     Dosage: 5 MG, 2X/DAY (TAKE ONE TABLET TWICE DAILY)
     Route: 048
     Dates: start: 20200925
  2. LEVOTHYROXINE. [Concomitant]
     Active Substance: LEVOTHYROXINE
     Dosage: 100 UG, UNK

REACTIONS (4)
  - Genital rash [Recovering/Resolving]
  - Nocturia [Recovering/Resolving]
  - Stomatitis [Recovering/Resolving]
  - Dry mouth [Recovering/Resolving]
